FAERS Safety Report 22382543 (Version 1)
Quarter: 2023Q2

REPORT INFORMATION
  Report Type: Spontaneous
  Country: ES (occurrence: ES)
  Receive Date: 20230530
  Receipt Date: 20230530
  Transmission Date: 20230722
  Serious: Yes (Hospitalization)
  Sender: FDA-Public Use
  Company Number: ES-MACLEODS PHARMACEUTICALS US LTD-MAC2023041537

PATIENT

DRUGS (3)
  1. SEVELAMER [Suspect]
     Active Substance: SEVELAMER
     Indication: Product used for unknown indication
     Dosage: 4.8 GRAM, QD (SEVELAMER CARBONATE )
     Route: 065
  2. SEVELAMER [Suspect]
     Active Substance: SEVELAMER
     Dosage: 4 GRAM, QD (SEVELAMER HYDROCHLORIDE )
     Route: 065
  3. LANTHANUM CARBONATE [Concomitant]
     Active Substance: LANTHANUM CARBONATE
     Indication: Product used for unknown indication
     Dosage: 3 GRAM, QD
     Route: 065

REACTIONS (7)
  - Gastrointestinal erosion [Recovered/Resolved]
  - Ileal ulcer [Recovered/Resolved]
  - Anal fissure [Recovered/Resolved]
  - Anaemia [Recovered/Resolved]
  - Gastrointestinal injury [Recovered/Resolved]
  - Haemorrhoids [Recovered/Resolved]
  - Melaena [Recovered/Resolved]
